FAERS Safety Report 6910863-3 (Version None)
Quarter: 2010Q3

REPORT INFORMATION
  Report Type: 
  Country: None (occurrence: None)
  Receive Date: 20100806
  Receipt Date: 20100729
  Transmission Date: 20110219
  Serious: Yes (Death)
  Sender: FDA-Public Use
  Company Number: A0873467A

PATIENT
  Sex: Male

DRUGS (2)
  1. ARZERRA [Suspect]
     Indication: LYMPHOMA
     Route: 065
  2. UNKNOWN [Concomitant]

REACTIONS (2)
  - DEATH [None]
  - SEPSIS [None]
